FAERS Safety Report 16766876 (Version 4)
Quarter: 2019Q4

REPORT INFORMATION
  Report Type: Spontaneous
  Country: US (occurrence: US)
  Receive Date: 20190903
  Receipt Date: 20191023
  Transmission Date: 20200122
  Serious: No
  Sender: FDA-Public Use
  Company Number: US-PFIZER INC-2019372125

PATIENT
  Age: 63 Year
  Sex: Female
  Weight: 77.98 kg

DRUGS (3)
  1. ADVIL [Suspect]
     Active Substance: IBUPROFEN
     Indication: HEADACHE
     Dosage: UNK
  2. ADVIL [Suspect]
     Active Substance: IBUPROFEN
     Dosage: 3 DF, UNK
     Dates: start: 20190826
  3. ADVIL [Suspect]
     Active Substance: IBUPROFEN
     Dosage: 3 DF, UNK
     Dates: start: 20190827

REACTIONS (4)
  - Poor quality product administered [Recovered/Resolved]
  - Product physical issue [Recovered/Resolved]
  - Epistaxis [Unknown]
  - Product commingling [Recovered/Resolved]

NARRATIVE: CASE EVENT DATE: 20190826
